FAERS Safety Report 19195903 (Version 1)
Quarter: 2021Q2

REPORT INFORMATION
  Report Type: Spontaneous
  Country: CA (occurrence: CA)
  Receive Date: 20210429
  Receipt Date: 20210429
  Transmission Date: 20210717
  Serious: Yes (Other)
  Sender: FDA-Public Use
  Company Number: CA-FRESENIUS KABI-FK202104095

PATIENT
  Age: 5 Month
  Sex: Male
  Weight: 7 kg

DRUGS (4)
  1. CEFTRIAXON (MANUFACTURER UNKNOWN) [Suspect]
     Active Substance: CEFTRIAXONE
     Indication: PRODUCT USED FOR UNKNOWN INDICATION
     Dosage: 540 MG DAILY
     Route: 042
  2. TOBRAMYCIN (MANUFACTURER UNKNOWN) [Suspect]
     Active Substance: TOBRAMYCIN
     Indication: PYELONEPHRITIS ACUTE
     Dosage: 36 MG / 24 H
     Route: 042
  3. AMPICILLIN (MANUFACTURER UNKNOWN) [Suspect]
     Active Substance: AMPICILLIN
     Indication: PRODUCT USED FOR UNKNOWN INDICATION
     Dosage: 360 MG / 6 H
     Route: 042
  4. CEFTRIAXON (MANUFACTURER UNKNOWN) [Suspect]
     Active Substance: CEFTRIAXONE
     Dosage: 350 MG ONCE
     Route: 030

REACTIONS (1)
  - Neutropenia [Unknown]
